FAERS Safety Report 8893083 (Version 1)
Quarter: 2012Q4

REPORT INFORMATION
  Report Type: 
  Country: US (occurrence: US)
  Receive Date: 20121107
  Receipt Date: 20121107
  Transmission Date: 20130627
  Serious: No
  Sender: FDA-Public Use
  Company Number: US-AMGEN-USASP2011052715

PATIENT
  Age: 84 Year

DRUGS (5)
  1. ENBREL [Suspect]
     Indication: PRODUCT USED FOR UNKNOWN INDICATION
     Dosage: 50 mg, qwk
     Route: 058
  2. PREMARIN [Concomitant]
     Dosage: .45 mg, UNK
  3. PREDNISONE [Concomitant]
     Dosage: 5 mg, UNK
  4. DIOVAN HCT [Concomitant]
     Dosage: 320 mg, UNK
  5. SULAR [Concomitant]
     Dosage: 17 mg, UNK

REACTIONS (2)
  - Injection site haemorrhage [Unknown]
  - Injection site bruising [Unknown]
